FAERS Safety Report 7183808-1 (Version None)
Quarter: 2010Q4

REPORT INFORMATION
  Report Type: 
  Country: None (occurrence: None)
  Receive Date: 20101222
  Receipt Date: 20101208
  Transmission Date: 20110411
  Serious: Yes (Hospitalization, Other)
  Sender: FDA-Public Use
  Company Number: PL-CELGENEUS-129-21880-10102844

PATIENT
  Sex: Male

DRUGS (8)
  1. REVLIMID [Suspect]
     Indication: MULTIPLE MYELOMA
     Route: 048
     Dates: start: 20100210
  2. REVLIMID [Suspect]
     Route: 048
     Dates: end: 20101020
  3. DEXAMETHASONE [Suspect]
     Indication: MULTIPLE MYELOMA
     Route: 065
     Dates: start: 20100210
  4. DEXAMETHASONE [Suspect]
     Route: 065
     Dates: start: 20100401
  5. TRANSTEC TTS [Concomitant]
     Route: 062
  6. MILURIT [Concomitant]
     Route: 065
  7. POLPRAZOL [Concomitant]
     Route: 065
  8. PLAVIX [Concomitant]
     Route: 048

REACTIONS (6)
  - AGITATION [None]
  - BLOOD PRESSURE DECREASED [None]
  - INSOMNIA [None]
  - LOSS OF CONSCIOUSNESS [None]
  - MULTIPLE MYELOMA [None]
  - THROMBOSIS [None]
